FAERS Safety Report 8979306 (Version 1)
Quarter: 2012Q4

REPORT INFORMATION
  Report Type: 
  Country: CN (occurrence: CN)
  Receive Date: 20121221
  Receipt Date: 20121221
  Transmission Date: 20130627
  Serious: Yes (Other)
  Sender: FDA-Public Use
  Company Number: CN-NOVOPROD-367113

PATIENT
  Sex: Male

DRUGS (3)
  1. VICTOZA [Suspect]
     Indication: PRODUCT USED FOR UNKNOWN INDICATION
     Dosage: 0.6mg, qd
     Dates: start: 2012, end: 2012
  2. VICTOZA [Suspect]
     Dosage: 1.2 mg, qd
     Dates: start: 2012, end: 2012
  3. VICTOZA [Suspect]
     Dosage: 0.8 mg, qd
     Dates: start: 2012

REACTIONS (2)
  - Thyroid cancer [Unknown]
  - Hypoglycaemia [Unknown]
